FAERS Safety Report 5719765-1 (Version None)
Quarter: 2008Q2

REPORT INFORMATION
  Report Type: 
  Country: None (occurrence: None)
  Receive Date: 20080428
  Receipt Date: 20070426
  Transmission Date: 20081010
  Serious: No
  Sender: FDA-Public Use
  Company Number: A0648865A

PATIENT
  Age: 45 Year
  Sex: Female

DRUGS (10)
  1. ONDANSETRON [Suspect]
     Indication: DRUG USE FOR UNKNOWN INDICATION
     Dosage: 5ML SINGLE DOSE
     Route: 042
     Dates: start: 20070425, end: 20070425
  2. METHOTREXATE [Concomitant]
  3. HYDROCHLOROTHIAZIDE [Concomitant]
  4. CLONIDINE HCL [Concomitant]
  5. TOPROL-XL [Concomitant]
  6. COVERA-HS [Concomitant]
  7. LORA TAB [Concomitant]
  8. VALIUM [Concomitant]
  9. PHENERGAN [Concomitant]
  10. ALBUTEROL [Concomitant]

REACTIONS (1)
  - INCORRECT ROUTE OF DRUG ADMINISTRATION [None]
